FAERS Safety Report 5900759-8 (Version None)
Quarter: 2008Q3

REPORT INFORMATION
  Report Type: 
  Country: None (occurrence: None)
  Receive Date: 20080929
  Receipt Date: 20080917
  Transmission Date: 20090109
  Serious: Yes (Other)
  Sender: FDA-Public Use
  Company Number: US-MERCK-0809USA03217

PATIENT
  Sex: Male

DRUGS (2)
  1. JANUVIA [Suspect]
     Indication: TYPE 2 DIABETES MELLITUS
     Route: 048
  2. ACTOS [Concomitant]
     Route: 065

REACTIONS (2)
  - MYOCARDIAL INFARCTION [None]
  - PANCREATITIS [None]
